FAERS Safety Report 8820013 (Version 2)
Quarter: 2012Q4

REPORT INFORMATION
  Report Type: 
  Country: US (occurrence: US)
  Receive Date: 20121001
  Receipt Date: 20121121
  Transmission Date: 20130627
  Serious: Yes (Hospitalization, Other)
  Sender: FDA-Public Use
  Company Number: US-ELI_LILLY_AND_COMPANY-US201209006267

PATIENT
  Age: 50 Year
  Sex: Male
  Weight: 126.98 kg

DRUGS (3)
  1. CYMBALTA [Suspect]
     Indication: PAIN
     Dosage: 60 mg, qd
     Dates: start: 20120201
  2. CYMBALTA [Suspect]
     Dosage: 60 mg, qd
     Route: 048
     Dates: start: 20120620
  3. NUCYNTA [Concomitant]
     Dosage: UNK UNK, bid

REACTIONS (2)
  - Loss of consciousness [Recovered/Resolved]
  - Grand mal convulsion [Recovered/Resolved]
